FAERS Safety Report 18146797 (Version 3)
Quarter: 2020Q4

REPORT INFORMATION
  Report Type: Spontaneous
  Country: US (occurrence: US)
  Receive Date: 20200813
  Receipt Date: 20201201
  Transmission Date: 20210113
  Serious: Yes (Other)
  Sender: FDA-Public Use
  Company Number: US-BAYER-2020-164894

PATIENT
  Age: 14 Year
  Sex: Male

DRUGS (3)
  1. KOVALTRY [Suspect]
     Active Substance: ANTIHEMOPHILIC FACTOR, HUMAN RECOMBINANT
     Indication: HAEMOPHILIA
     Dosage: UNK, TIW
     Dates: start: 201911
  2. KOVALTRY [Suspect]
     Active Substance: ANTIHEMOPHILIC FACTOR, HUMAN RECOMBINANT
     Indication: HAEMOPHILIA
     Dosage: 2104 UNITS, FOR EVENT TREATMENT
     Route: 042
     Dates: start: 20200802, end: 20200802
  3. AMICAR [Concomitant]
     Active Substance: AMINOCAPROIC ACID

REACTIONS (3)
  - Traumatic haemorrhage [Unknown]
  - Epistaxis [Recovered/Resolved with Sequelae]
  - Fall [Unknown]

NARRATIVE: CASE EVENT DATE: 20200802
